FAERS Safety Report 9100764 (Version 1)
Quarter: 2013Q1

REPORT INFORMATION
  Report Type: Spontaneous
  Country: US (occurrence: US)
  Receive Date: 20130129
  Receipt Date: 20130129
  Transmission Date: 20140127
  Serious: No
  Sender: FDA-Public Use
  Company Number: US-TARO-2012P1064729

PATIENT
  Age: 75 Year
  Sex: Female
  Weight: 59.88 kg

DRUGS (2)
  1. CLOMIPRAMINE HCL [Suspect]
     Route: 048
     Dates: start: 20120928
  2. ALPRAZOLAM [Concomitant]
     Dates: start: 1997, end: 20121110

REACTIONS (2)
  - Pruritus [Not Recovered/Not Resolved]
  - Urticaria [Not Recovered/Not Resolved]
